FAERS Safety Report 23879692 (Version 1)
Quarter: 2024Q2

REPORT INFORMATION
  Report Type: Spontaneous
  Country: US (occurrence: US)
  Receive Date: 20240521
  Receipt Date: 20240521
  Transmission Date: 20240715
  Serious: No
  Sender: FDA-Public Use
  Company Number: US-GILEAD-2024-0673280

PATIENT
  Age: 45 Year
  Sex: Female

DRUGS (5)
  1. SOFOSBUVIR\VELPATASVIR [Suspect]
     Active Substance: SOFOSBUVIR\VELPATASVIR
     Indication: Chronic hepatitis C
     Dosage: TAKE 1 TABLET BY MOUTH ONCE DAILY WITH OR WITHOUT FOOD
     Route: 048
  2. ZOLPIDEM TARTRATE [Concomitant]
     Active Substance: ZOLPIDEM TARTRATE
  3. LISINOPRIL [Concomitant]
     Active Substance: LISINOPRIL
  4. CARVEDILOL [Concomitant]
     Active Substance: CARVEDILOL
  5. ONDANSETRON HYDROCHLORIDE [Concomitant]
     Active Substance: ONDANSETRON HYDROCHLORIDE

REACTIONS (1)
  - Nausea [Unknown]
